FAERS Safety Report 8376270-4 (Version None)
Quarter: 2012Q1

REPORT INFORMATION
  Report Type: 
  Country: None (occurrence: None)
  Receive Date: 20120323
  Receipt Date: 20110729
  Transmission Date: 20120608
  Serious: Yes (Hospitalization, Other)
  Sender: FDA-Public Use
  Company Number: 163-21880-11060778

PATIENT
  Age: 76 Year
  Sex: Male

DRUGS (3)
  1. REVLIMID [Suspect]
     Indication: LYMPHOCYTIC LYMPHOMA
     Dosage: 10 MG, QDAY X 28 DAYS, PO
     Route: 048
     Dates: start: 20110524
  2. REVLIMID [Suspect]
  3. ASPIRIN [Concomitant]

REACTIONS (5)
  - OROPHARYNGEAL BLISTERING [None]
  - GAIT DISTURBANCE [None]
  - ANAEMIA [None]
  - ORAL MUCOSAL BLISTERING [None]
  - DYSPNOEA [None]
